FAERS Safety Report 17861228 (Version 4)
Quarter: 2021Q2

REPORT INFORMATION
  Report Type: Spontaneous
  Country: US (occurrence: US)
  Receive Date: 20200604
  Receipt Date: 20210607
  Transmission Date: 20210717
  Serious: Yes (Other)
  Sender: FDA-Public Use
  Company Number: US-HARMONY BIOSCIENCES-2020HMY00212

PATIENT
  Age: 18 Year
  Sex: Male
  Weight: 158.73 kg

DRUGS (16)
  1. WAKIX [Suspect]
     Active Substance: PITOLISANT HYDROCHLORIDE
     Indication: HYPERSOMNIA
  2. VITAMIN B?1 [Concomitant]
     Active Substance: THIAMINE HYDROCHLORIDE
  3. LEVEMIR [Concomitant]
     Active Substance: INSULIN DETEMIR
  4. VITAMIN C [Concomitant]
     Active Substance: ASCORBIC ACID
  5. WAKIX [Suspect]
     Active Substance: PITOLISANT HYDROCHLORIDE
     Indication: CATAPLEXY
     Dosage: 35.6 MG, 1X/DAY EVERY MORNING
     Route: 048
     Dates: start: 20200804
  6. NOVOLOG [Concomitant]
     Active Substance: INSULIN ASPART
  7. MULTIVITAMIN [Concomitant]
     Active Substance: VITAMINS
  8. LANCETS [Concomitant]
     Active Substance: DEVICE
  9. WAKIX [Suspect]
     Active Substance: PITOLISANT HYDROCHLORIDE
     Indication: CATAPLEXY
  10. WAKIX [Suspect]
     Active Substance: PITOLISANT HYDROCHLORIDE
     Indication: NARCOLEPSY
     Dosage: 17.8 MG, 1X/DAY
     Route: 048
     Dates: start: 20200306, end: 20200803
  11. NOVOLOG [Concomitant]
     Active Substance: INSULIN ASPART
  12. WAKIX [Suspect]
     Active Substance: PITOLISANT HYDROCHLORIDE
     Indication: NARCOLEPSY
     Dosage: 1X/DAY FOR 1 WEEK
     Route: 048
     Dates: start: 20200228, end: 20200305
  13. ZINC?15 [Concomitant]
  14. UNSPECIFIED LOW GLUCOSE PEN [Concomitant]
  15. WAKIX [Suspect]
     Active Substance: PITOLISANT HYDROCHLORIDE
     Indication: HYPERSOMNIA
  16. METFORMIN HCL [Concomitant]
     Active Substance: METFORMIN HYDROCHLORIDE

REACTIONS (13)
  - Somnolence [Not Recovered/Not Resolved]
  - Intentional dose omission [Unknown]
  - Off label use [Not Recovered/Not Resolved]
  - Cough [Recovered/Resolved]
  - Insomnia [Not Recovered/Not Resolved]
  - Fatigue [Not Recovered/Not Resolved]
  - Weight increased [Not Recovered/Not Resolved]
  - Glycosylated haemoglobin increased [Recovering/Resolving]
  - Nasal congestion [Recovered/Resolved]
  - Depression [Not Recovered/Not Resolved]
  - Skin discolouration [Recovering/Resolving]
  - Decreased interest [Not Recovered/Not Resolved]
  - Oropharyngeal pain [Recovered/Resolved]

NARRATIVE: CASE EVENT DATE: 2020
